FAERS Safety Report 10728883 (Version 2)
Quarter: 2015Q1

REPORT INFORMATION
  Report Type: Spontaneous
  Country: US (occurrence: US)
  Receive Date: 20150122
  Receipt Date: 20150219
  Transmission Date: 20150721
  Serious: Yes (Hospitalization, Disabling, Other)
  Sender: FDA-Public Use
  Company Number: US-SA-2015SA005277

PATIENT
  Age: 8 Year
  Sex: Male
  Weight: 23.9 kg

DRUGS (41)
  1. NORMAL SALINE [Concomitant]
     Active Substance: SODIUM CHLORIDE
     Route: 042
     Dates: start: 20140527
  2. ACETAMINOPHEN. [Concomitant]
     Active Substance: ACETAMINOPHEN
     Indication: PREMEDICATION
     Dosage: 400MG=12.5 ML
     Route: 048
     Dates: start: 20140722
  3. DIPHENHYDRAMINE [Concomitant]
     Active Substance: DIPHENHYDRAMINE
     Indication: URTICARIA
     Dosage: 12.5=5ML J-TUBE Q4H PRN
     Route: 042
     Dates: start: 20140520
  4. ERGOCALCIFEROL. [Concomitant]
     Active Substance: ERGOCALCIFEROL
     Dosage: 1600 UNITS=0.2 ML J-TUBE
     Dates: start: 20140528
  5. HYDROCORTISONE. [Concomitant]
     Active Substance: HYDROCORTISONE
     Indication: PREMEDICATION
     Route: 042
     Dates: start: 20140530
  6. IBUPROFEN. [Concomitant]
     Active Substance: IBUPROFEN
     Indication: PAIN
     Dosage: 200MG=10M;L;, J-TUBE Q6H SUSPENSION
     Dates: start: 20140528
  7. PREDNISOLONE. [Concomitant]
     Active Substance: PREDNISOLONE
     Indication: ASTHMA
     Dosage: 22.5MG=7.5 ML J-TUBE
  8. MYOZYME [Suspect]
     Active Substance: ALGLUCOSIDASE ALFA
     Indication: GLYCOGEN STORAGE DISEASE TYPE II
     Route: 042
     Dates: start: 20060911, end: 201204
  9. LACTATED RINGER^S INJECTION [Concomitant]
     Route: 042
     Dates: start: 20141121
  10. DEXAMETHASONE/TOBRAMYCIN [Concomitant]
     Dosage: 3 DROPS IN AFFECTED EAR
  11. EPINEPHRINE. [Concomitant]
     Active Substance: EPINEPHRINE
     Indication: HYPERSENSITIVITY
     Route: 030
  12. LIDOCAINE. [Concomitant]
     Active Substance: LIDOCAINE
     Route: 061
     Dates: start: 20140722
  13. PANTOPRAZOLE [Concomitant]
     Active Substance: PANTOPRAZOLE SODIUM
     Indication: ASTHMA
     Dosage: 22.5MG=7.5ML J-TUBE, PRN
  14. SODIUM CHLORIDE. [Concomitant]
     Active Substance: SODIUM CHLORIDE
     Route: 042
     Dates: start: 20140530
  15. MYOZYME [Suspect]
     Active Substance: ALGLUCOSIDASE ALFA
     Indication: GLYCOGEN STORAGE DISEASE TYPE II
     Route: 042
     Dates: start: 20140428
  16. DEXTROSE INFUSION FLUID 5% [Concomitant]
     Route: 042
     Dates: start: 20140722
  17. CIPROFLOXACIN/DEXAMETHASONE [Concomitant]
     Dosage: 3 DROPS IN INFECTED EAR
  18. FERROUS SULFATE [Concomitant]
     Active Substance: FERROUS SULFATE\FERROUS SULFATE, DRIED
     Indication: BLOOD IRON
     Dosage: 30 MG=2ML, J TUBE, 11 REFILLS
     Dates: start: 20140528
  19. LACTOBACILLUS ACIDOPHILUS [Concomitant]
     Active Substance: LACTOBACILLUS ACIDOPHILUS
     Indication: DIARRHOEA
     Route: 048
  20. METHYLPREDNISOLONE. [Concomitant]
     Active Substance: METHYLPREDNISOLONE
     Dosage: 20MG=0.5ML
     Route: 042
     Dates: start: 20140530
  21. ZOFRAN [Concomitant]
     Active Substance: ONDANSETRON HYDROCHLORIDE
     Indication: VOMITING
     Dosage: 3MG=1.5ML,Q6H
     Route: 042
     Dates: start: 20140531
  22. DIPHENHYDRAMINE [Concomitant]
     Active Substance: DIPHENHYDRAMINE
     Indication: PRURITUS
     Dosage: 12.5=5ML J-TUBE Q4H PRN
     Route: 042
     Dates: start: 20140520
  23. HYDROCORTISONE. [Concomitant]
     Active Substance: HYDROCORTISONE
     Indication: PREMEDICATION
     Route: 061
     Dates: start: 20140528
  24. ACETAMINOPHEN. [Concomitant]
     Active Substance: ACETAMINOPHEN
     Indication: PREMEDICATION
     Dosage: 325=10.15ML
     Route: 048
     Dates: start: 20140804
  25. CALCIUM CARBONATE. [Concomitant]
     Active Substance: CALCIUM CARBONATE
     Dosage: 70MG=0.7ML G-TUBE
     Dates: start: 20140520
  26. MUPIROCIN. [Concomitant]
     Active Substance: MUPIROCIN
     Route: 061
  27. NYSTATIN. [Concomitant]
     Active Substance: NYSTATIN
     Indication: DERMATITIS DIAPER
     Route: 061
  28. ALTEPLASE [Concomitant]
     Active Substance: ALTEPLASE
     Dosage: 1MG=1ML
     Route: 042
     Dates: start: 20140527
  29. POLYMYXIN B/BACITRACIN [Concomitant]
     Dosage: 500UNITS-10,000UNITS
     Route: 061
     Dates: start: 20140528
  30. BUDESONIDE. [Concomitant]
     Active Substance: BUDESONIDE
     Dosage: 0.5MG=2ML
     Route: 055
     Dates: start: 20140528
  31. HEPARIN LOCK FLUSH [Concomitant]
     Active Substance: HEPARIN SODIUM
     Route: 042
     Dates: start: 20140602
  32. IBUPROFEN. [Concomitant]
     Active Substance: IBUPROFEN
     Indication: PYREXIA
     Dosage: 200MG=10M;L;, J-TUBE Q6H SUSPENSION
     Dates: start: 20140528
  33. TRIMETHOPRIM/SULFAMETHOXAZOLE [Concomitant]
     Dosage: 13 ML, 260 ML ,0 REFILLS
     Route: 048
  34. DIPHENHYDRAMINE [Concomitant]
     Active Substance: DIPHENHYDRAMINE
     Indication: PREMEDICATION
     Dosage: 12.5=5ML J-TUBE Q4H PRN
     Route: 042
     Dates: start: 20140520
  35. XOPENEX [Concomitant]
     Active Substance: LEVALBUTEROL HYDROCHLORIDE
     Dosage: 1.25=3ML NEBULIZED USES BID, INCREASED TO 4X DAILY
     Route: 055
     Dates: start: 20140528
  36. METHYLPREDNISOLONE. [Concomitant]
     Active Substance: METHYLPREDNISOLONE
     Dosage: 20MG=0.5ML
     Route: 042
     Dates: start: 20140804
  37. MUPIROCIN. [Concomitant]
     Active Substance: MUPIROCIN
     Dosage: 2%
     Route: 061
     Dates: start: 20140528
  38. ZOFRAN [Concomitant]
     Active Substance: ONDANSETRON HYDROCHLORIDE
     Indication: NAUSEA
     Dosage: 3MG=1.5ML,Q6H
     Route: 042
     Dates: start: 20140531
  39. ACETAMINOPHEN. [Concomitant]
     Active Substance: ACETAMINOPHEN
     Indication: PREMEDICATION
     Dosage: 325=10.15ML G-TUBE, LIQ
     Route: 048
     Dates: start: 20140527
  40. LIDOCAINE/PRILOCAINE [Concomitant]
     Indication: PREMEDICATION
     Dosage: EMLA 2.5-2.5%)
     Route: 061
     Dates: start: 20140722
  41. METHYLPREDNISOLONE. [Concomitant]
     Active Substance: METHYLPREDNISOLONE
     Dosage: 40MG=1ML
     Route: 042
     Dates: start: 20140804

REACTIONS (17)
  - Pneumonia [Unknown]
  - Left ventricular hypertrophy [Unknown]
  - Nuclear magnetic resonance imaging brain abnormal [Not Recovered/Not Resolved]
  - Tracheostomy [Unknown]
  - Tracheobronchitis [Unknown]
  - General physical health deterioration [Unknown]
  - Osteopenia [Unknown]
  - Femur fracture [Unknown]
  - Joint contracture [Unknown]
  - Hypoacusis [Unknown]
  - Forearm fracture [Unknown]
  - Sinus tachycardia [Unknown]
  - Precocious puberty [Unknown]
  - Respiratory disorder [Unknown]
  - Diaphragm muscle weakness [Unknown]
  - Foot fracture [Unknown]
  - Astigmatism [Unknown]

NARRATIVE: CASE EVENT DATE: 20070810
